FAERS Safety Report 9028102 (Version 2)
Quarter: 2013Q1

REPORT INFORMATION
  Report Type: Spontaneous
  Country: US (occurrence: US)
  Receive Date: 20130123
  Receipt Date: 20130220
  Transmission Date: 20140127
  Serious: Yes (Other)
  Sender: FDA-Public Use
  Company Number: PHEH2013US001718

PATIENT
  Sex: 0

DRUGS (3)
  1. CLOZARIL [Suspect]
     Dosage: 200 MG, BID
  2. CLOZARIL [Suspect]
     Dosage: UNK (DOSE INCREASED BY 25 MG )
  3. CLOZARIL [Suspect]
     Dosage: UNK (DOSE REDUCED)

REACTIONS (1)
  - Psychotic disorder [Unknown]
